FAERS Safety Report 23737167 (Version 1)
Quarter: 2024Q2

REPORT INFORMATION
  Report Type: Spontaneous
  Country: PL (occurrence: PL)
  Receive Date: 20240412
  Receipt Date: 20240412
  Transmission Date: 20240715
  Serious: Yes (Other)
  Sender: FDA-Public Use
  Company Number: PL-ABBVIE-5685754

PATIENT
  Age: 69 Year
  Sex: Female

DRUGS (9)
  1. AZACITIDINE [Suspect]
     Active Substance: AZACITIDINE
     Indication: Acute myeloid leukaemia
     Dosage: 75 MILLIGRAM/SQ. METER
     Route: 065
  2. VENETOCLAX [Suspect]
     Active Substance: VENETOCLAX
     Indication: Acute myeloid leukaemia
     Dosage: LAST ADMIN DATE : 2022
     Route: 048
     Dates: start: 20220921
  3. VENETOCLAX [Suspect]
     Active Substance: VENETOCLAX
     Dosage: FIRST CYCLE
     Route: 048
     Dates: start: 20220926, end: 20221002
  4. VENETOCLAX [Suspect]
     Active Substance: VENETOCLAX
     Dosage: FOURTH CYCLE
     Route: 048
  5. VENETOCLAX [Suspect]
     Active Substance: VENETOCLAX
     Dosage: 300 MILLIGRAM (FIFTH CYCLE, DOSE REDUCED)
     Route: 048
  6. VENETOCLAX [Suspect]
     Active Substance: VENETOCLAX
     Dosage: 200 MILLIGRAM (SIXTH CYCLE, DOSE REDUCED)
     Route: 048
  7. VENETOCLAX [Suspect]
     Active Substance: VENETOCLAX
     Dosage: 100 MILLIGRAM (SEVENTH CYCLE, DOSE REDUCED)
     Route: 048
  8. VENETOCLAX [Suspect]
     Active Substance: VENETOCLAX
     Dosage: FOURTEEN CYCLE
     Route: 048
     Dates: start: 20240213, end: 20240219
  9. VENETOCLAX [Suspect]
     Active Substance: VENETOCLAX
     Dosage: 400 MILLIGRAM
     Route: 048

REACTIONS (10)
  - Neutropenia [Unknown]
  - Neutrophil count decreased [Unknown]
  - COVID-19 [Unknown]
  - Loss of personal independence in daily activities [Unknown]
  - Inflammatory marker increased [Unknown]
  - Balance disorder [Not Recovered/Not Resolved]
  - White blood cell count decreased [Recovering/Resolving]
  - Dizziness [Not Recovered/Not Resolved]
  - Pyrexia [Unknown]
  - Haemoglobin decreased [Recovering/Resolving]

NARRATIVE: CASE EVENT DATE: 20220922
